FAERS Safety Report 4755450-0 (Version None)
Quarter: 2005Q3

REPORT INFORMATION
  Report Type: 
  Country: None (occurrence: None)
  Receive Date: 20050829
  Receipt Date: 20050822
  Transmission Date: 20060218
  Serious: Yes (Hospitalization)
  Sender: FDA-Public Use
  Company Number: GXKR2005GB01495

PATIENT
  Age: 19 Year
  Sex: Male
  Weight: 70 kg

DRUGS (2)
  1. CITALOPRAM (NGX)(CITALOPRAM) [Suspect]
     Indication: DEPRESSION
     Dosage: 20 MG, ORAL
     Route: 048
     Dates: start: 20050729, end: 20050808
  2. FLUOXETINE [Concomitant]

REACTIONS (3)
  - HEAD INJURY [None]
  - LOSS OF CONSCIOUSNESS [None]
  - ROAD TRAFFIC ACCIDENT [None]
